FAERS Safety Report 5743265-6 (Version None)
Quarter: 2008Q2

REPORT INFORMATION
  Report Type: 
  Country: None (occurrence: None)
  Receive Date: 20080519
  Receipt Date: 20080508
  Transmission Date: 20081010
  Serious: Yes (Other)
  Sender: FDA-Public Use
  Company Number: US-PFIZER INC-2008041664

PATIENT
  Sex: Female
  Weight: 90.7 kg

DRUGS (7)
  1. CHANTIX [Suspect]
     Indication: SMOKING CESSATION THERAPY
  2. GLIPIZIDE [Concomitant]
  3. VYTORIN [Concomitant]
  4. METFORMIN HCL [Concomitant]
  5. NEXIUM [Concomitant]
  6. PAXIL [Concomitant]
  7. ALL OTHER THERAPEUTIC PRODUCTS [Concomitant]

REACTIONS (2)
  - BLOOD GLUCOSE INCREASED [None]
  - HYPERSOMNIA [None]
